FAERS Safety Report 19415195 (Version 2)
Quarter: 2021Q3

REPORT INFORMATION
  Report Type: Spontaneous
  Country: DE (occurrence: DE)
  Receive Date: 20210615
  Receipt Date: 20210705
  Transmission Date: 20211014
  Serious: Yes (Hospitalization, Disabling, Other)
  Sender: FDA-Public Use
  Company Number: DE-SA-2021SA196456

PATIENT
  Age: 54 Year
  Sex: Female
  Weight: 168 kg

DRUGS (2)
  1. CABLIVI [Suspect]
     Active Substance: CAPLACIZUMAB-YHDP
     Dosage: 10 MG, QD
     Route: 058
     Dates: start: 202106
  2. CABLIVI [Suspect]
     Active Substance: CAPLACIZUMAB-YHDP
     Indication: THROMBOTIC THROMBOCYTOPENIC PURPURA
     Dosage: 10 MG, QD
     Route: 042
     Dates: start: 20210602, end: 20210602

REACTIONS (11)
  - Neurologic neglect syndrome [Unknown]
  - Hemiplegia [Unknown]
  - Embolic cerebellar infarction [Unknown]
  - Platelet count decreased [Unknown]
  - Drug ineffective [Unknown]
  - Therapeutic response decreased [Unknown]
  - Cerebrovascular accident [Unknown]
  - Epilepsy [Unknown]
  - Cerebral ischaemia [Unknown]
  - Cerebral infarction [Unknown]
  - Cardiac perfusion defect [Unknown]

NARRATIVE: CASE EVENT DATE: 20210601
